FAERS Safety Report 7555919-X (Version None)
Quarter: 2011Q2

REPORT INFORMATION
  Report Type: 
  Country: None (occurrence: None)
  Receive Date: 20110618
  Receipt Date: 20110606
  Transmission Date: 20111010
  Serious: Yes (Hospitalization)
  Sender: FDA-Public Use
  Company Number: US-ELI_LILLY_AND_COMPANY-US201011005975

PATIENT
  Sex: Male

DRUGS (4)
  1. FORTEO [Suspect]
     Dosage: 20 UG, QD
     Route: 065
  2. FORTEO [Suspect]
     Indication: OSTEOPOROSIS
     Dosage: 20 UG, DAILY (1/D)
     Route: 065
     Dates: start: 20101119
  3. FORTEO [Suspect]
     Dosage: 20 UG, QD
     Route: 065
  4. CALCIUM CARBONATE [Concomitant]

REACTIONS (4)
  - CONSTIPATION [None]
  - SPINAL FUSION SURGERY [None]
  - BONE DENSITY DECREASED [None]
  - BLOOD CALCIUM INCREASED [None]
